FAERS Safety Report 15489228 (Version 1)
Quarter: 2018Q4

REPORT INFORMATION
  Report Type: Spontaneous
  Country: US (occurrence: US)
  Receive Date: 20181011
  Receipt Date: 20181011
  Transmission Date: 20190205
  Serious: No
  Sender: FDA-Public Use
  Company Number: US-PFIZER INC-2018403267

PATIENT
  Age: 67 Year
  Sex: Female
  Weight: 94.35 kg

DRUGS (3)
  1. XELJANZ XR [Suspect]
     Active Substance: TOFACITINIB CITRATE
     Indication: RHEUMATOID ARTHRITIS
     Dosage: 11 MG, DAILY
     Route: 048
     Dates: start: 20180906
  2. XELJANZ XR [Suspect]
     Active Substance: TOFACITINIB CITRATE
     Indication: OSTEOPOROSIS
  3. XELJANZ XR [Suspect]
     Active Substance: TOFACITINIB CITRATE
     Indication: INFLAMMATION

REACTIONS (5)
  - Spinal osteoarthritis [Unknown]
  - Osteoarthritis [Unknown]
  - Urinary tract infection [Recovered/Resolved]
  - Herpes zoster [Recovering/Resolving]
  - Intervertebral disc protrusion [Unknown]

NARRATIVE: CASE EVENT DATE: 201809
